FAERS Safety Report 21989127 (Version 1)
Quarter: 2023Q1

REPORT INFORMATION
  Report Type: Spontaneous
  Country: US (occurrence: US)
  Receive Date: 20230214
  Receipt Date: 20230214
  Transmission Date: 20230417
  Serious: Yes (Hospitalization)
  Sender: FDA-Public Use
  Company Number: US-002147023-NVSC2023US030273

PATIENT
  Sex: Female

DRUGS (3)
  1. PROMACTA [Suspect]
     Active Substance: ELTROMBOPAG OLAMINE
     Indication: Bone cancer
     Dosage: 150 MG, QD
     Route: 048
     Dates: start: 202204
  2. PROMACTA [Suspect]
     Active Substance: ELTROMBOPAG OLAMINE
     Indication: Chondrosarcoma
  3. IBRANCE [Concomitant]
     Active Substance: PALBOCICLIB
     Indication: Product used for unknown indication
     Dosage: 1 DOSAGE FORM, QD (ON DAY 1 TO 14 OF A 28 DAYS CYCLE)
     Route: 048

REACTIONS (6)
  - Thrombocytopenia [Unknown]
  - Hypervolaemia [Unknown]
  - Hypoxia [Unknown]
  - Cancer pain [Unknown]
  - Dyspnoea [Unknown]
  - Product use in unapproved indication [Unknown]
